FAERS Safety Report 23837035 (Version 1)
Quarter: 2024Q2

REPORT INFORMATION
  Report Type: Spontaneous
  Country: CN (occurrence: CN)
  Receive Date: 20240509
  Receipt Date: 20240509
  Transmission Date: 20240716
  Serious: Yes (Life-Threatening)
  Sender: FDA-Public Use
  Company Number: CN-ELI_LILLY_AND_COMPANY-CN202405004140

PATIENT
  Age: 56 Year
  Sex: Female

DRUGS (4)
  1. GEMCITABINE HYDROCHLORIDE [Suspect]
     Active Substance: GEMCITABINE HYDROCHLORIDE
     Indication: Breast cancer
     Dosage: 1400 MG, DAILY (ONCE A DAY)
     Route: 041
     Dates: start: 20240420, end: 20240420
  2. CAMRELIZUMAB [Suspect]
     Active Substance: CAMRELIZUMAB
     Indication: Breast cancer
     Dosage: 200 MG, DAILY (ONCE A DAY)
     Route: 041
     Dates: start: 20240420, end: 20240420
  3. APATINIB [Suspect]
     Active Substance: APATINIB
     Indication: Breast cancer
     Dosage: 250 MG, DAILY
     Route: 048
     Dates: start: 20240420
  4. CISPLATIN [Suspect]
     Active Substance: CISPLATIN
     Indication: Breast cancer
     Dosage: 40 MG, DAILY
     Route: 041
     Dates: start: 20240420, end: 20240420

REACTIONS (2)
  - Platelet count decreased [Recovering/Resolving]
  - Myelosuppression [Recovering/Resolving]

NARRATIVE: CASE EVENT DATE: 20240428
